FAERS Safety Report 8784276 (Version 1)
Quarter: 2012Q4

REPORT INFORMATION
  Report Type: 
  Country: US (occurrence: US)
  Receive Date: 20120913
  Receipt Date: 20120913
  Transmission Date: 20130627
  Serious: No
  Sender: FDA-Public Use
  Company Number: US-ASTRAZENECA-2012SE61281

PATIENT
  Age: 68 Year
  Sex: Male

DRUGS (1)
  1. ENTOCORT EC [Suspect]
     Indication: CROHN^S DISEASE
     Route: 048

REACTIONS (3)
  - Nephrolithiasis [Unknown]
  - Skin atrophy [Unknown]
  - Contusion [Unknown]
